FAERS Safety Report 22038842 (Version 1)
Quarter: 2023Q1

REPORT INFORMATION
  Report Type: Spontaneous
  Country: US (occurrence: US)
  Receive Date: 20230227
  Receipt Date: 20230227
  Transmission Date: 20230418
  Serious: No
  Sender: FDA-Public Use
  Company Number: US-BRISTOL-MYERS SQUIBB COMPANY-2023-027735

PATIENT
  Age: 67 Year
  Sex: Male

DRUGS (1)
  1. LENALIDOMIDE [Suspect]
     Active Substance: LENALIDOMIDE
     Indication: Bone cancer
     Dosage: FREQUENCY: EVERY NIGHT AT BEDTIME FOR 21 DAYS ON, THEN OFF FOR 7 DAYS, REPEAT EVERY 28 DAY CYCLE
     Route: 048

REACTIONS (1)
  - Off label use [Unknown]
